FAERS Safety Report 20164352 (Version 2)
Quarter: 2022Q1

REPORT INFORMATION
  Report Type: Spontaneous
  Country: SK (occurrence: SK)
  Receive Date: 20211209
  Receipt Date: 20220110
  Transmission Date: 20220423
  Serious: Yes (Death)
  Sender: FDA-Public Use
  Company Number: SK-BAYER-2021A263379

PATIENT
  Age: 81 Year
  Sex: Male

DRUGS (4)
  1. XOFIGO [Suspect]
     Active Substance: RADIUM RA-223 DICHLORIDE
     Indication: Prostate cancer stage IV
     Dosage: UNK
     Dates: start: 20180914, end: 20180914
  2. XOFIGO [Suspect]
     Active Substance: RADIUM RA-223 DICHLORIDE
     Indication: Metastases to bone
     Dosage: UNK
     Dates: start: 20181012, end: 20181012
  3. XOFIGO [Suspect]
     Active Substance: RADIUM RA-223 DICHLORIDE
     Indication: Prostate cancer stage IV
     Dosage: UNK
     Dates: start: 20181109, end: 20181109
  4. XOFIGO [Suspect]
     Active Substance: RADIUM RA-223 DICHLORIDE
     Indication: Prostate cancer stage IV
     Dosage: UNK
     Dates: start: 20181207, end: 20181207

REACTIONS (1)
  - Death [Fatal]

NARRATIVE: CASE EVENT DATE: 20191019
